FAERS Safety Report 13174529 (Version 2)
Quarter: 2017Q1

REPORT INFORMATION
  Report Type: Spontaneous
  Country: US (occurrence: US)
  Receive Date: 20170201
  Receipt Date: 20170301
  Transmission Date: 20170428
  Serious: Yes (Hospitalization, Other)
  Sender: FDA-Public Use
  Company Number: US-009507513-1701USA010802

PATIENT
  Age: 56 Year
  Sex: Female

DRUGS (1)
  1. ZEPATIER [Suspect]
     Active Substance: ELBASVIR\GRAZOPREVIR
     Indication: HEPATITIS C
     Dosage: 1 TABLET (100 MG/50 MG) ONE TIME DAILY
     Route: 048
     Dates: start: 201611, end: 20170112

REACTIONS (4)
  - Chest pain [Unknown]
  - Malaise [Unknown]
  - Incorrect dosage administered [Unknown]
  - Seizure [Unknown]

NARRATIVE: CASE EVENT DATE: 201611
